FAERS Safety Report 14700102 (Version 2)
Quarter: 2018Q2

REPORT INFORMATION
  Report Type: Spontaneous
  Country: JP (occurrence: JP)
  Receive Date: 20180330
  Receipt Date: 20180405
  Transmission Date: 20180711
  Serious: Yes (Death, Hospitalization, Other)
  Sender: FDA-Public Use
  Company Number: JP-ASTRAZENECA-2017SF31873

PATIENT
  Age: 28934 Day
  Sex: Male
  Weight: 75 kg

DRUGS (2)
  1. IRESSA [Suspect]
     Active Substance: GEFITINIB
     Indication: LUNG ADENOCARCINOMA
     Route: 048
     Dates: start: 20171017, end: 20171111
  2. IRESSA [Suspect]
     Active Substance: GEFITINIB
     Indication: LUNG ADENOCARCINOMA
     Route: 048
     Dates: start: 20171112, end: 20171208

REACTIONS (13)
  - Cardiac failure [Unknown]
  - Lymphangiosis carcinomatosa [Unknown]
  - Lung disorder [Fatal]
  - Mobility decreased [Unknown]
  - Blood pressure decreased [Unknown]
  - Altered state of consciousness [Unknown]
  - Pneumonia [Fatal]
  - Off label use [Fatal]
  - Metastases to lung [Unknown]
  - Cardiovascular insufficiency [Unknown]
  - Multiple organ dysfunction syndrome [Fatal]
  - Oedema peripheral [Recovered/Resolved]
  - Metastases to bone [Unknown]

NARRATIVE: CASE EVENT DATE: 20171208
